FAERS Safety Report 8246880 (Version 2)
Quarter: 2013Q2

REPORT INFORMATION
  Report Type: Report from Study
  Country: KR (occurrence: KR)
  Receive Date: 20111116
  Receipt Date: 20130501
  Transmission Date: 20140414
  Serious: Yes (Hospitalization)
  Sender: FDA-Public Use
  Company Number: KR-ROCHE-1011821

PATIENT
  Age: 67 Year
  Sex: Female

DRUGS (3)
  1. RANIBIZUMAB [Suspect]
     Indication: AGE-RELATED MACULAR DEGENERATION
     Route: 050
     Dates: start: 20110920
  2. FLOMOX [Concomitant]
     Route: 065
     Dates: start: 20110920, end: 20110922
  3. VIGAMOX [Concomitant]
     Route: 065
     Dates: start: 20110920, end: 20110922

REACTIONS (1)
  - Retinal haemorrhage [Recovered/Resolved with Sequelae]
